FAERS Safety Report 12622450 (Version 1)
Quarter: 2016Q3

REPORT INFORMATION
  Report Type: Report from Study
  Country: DE (occurrence: DE)
  Receive Date: 20160804
  Receipt Date: 20160804
  Transmission Date: 20161109
  Serious: Yes (Other)
  Sender: FDA-Public Use
  Company Number: DE-UCBSA-2015040708

PATIENT
  Sex: Male
  Weight: 87 kg

DRUGS (5)
  1. DICLOFENAC [Concomitant]
     Active Substance: DICLOFENAC
     Dosage: 75 MG, AS NEEDED (PRN)
     Dates: start: 20160106
  2. L-THYROXIN [Concomitant]
     Active Substance: LEVOTHYROXINE SODIUM
     Indication: GOITRE
     Dosage: 50 ?G, ONCE DAILY (QD)
     Route: 048
     Dates: start: 20110331
  3. DICLOFENAC [Concomitant]
     Active Substance: DICLOFENAC
     Indication: ANKYLOSING SPONDYLITIS
     Dosage: 75 MG, ONCE DAILY (QD)
     Route: 048
     Dates: start: 20080410, end: 20160105
  4. ARCOXIA [Concomitant]
     Active Substance: ETORICOXIB
     Indication: ANKYLOSING SPONDYLITIS
     Dosage: 90 MG, AS NEEDED (PRN)
     Route: 048
     Dates: start: 2015
  5. CERTOLIZUMAB PEGOL [Suspect]
     Active Substance: CERTOLIZUMAB PEGOL
     Indication: ANKYLOSING SPONDYLITIS
     Dosage: LOADING DOSE AND MAINTENANCE DOSE OF 200 MG EVERY 2 WEEKS
     Route: 058
     Dates: start: 20151117, end: 20160307

REACTIONS (3)
  - Bronchitis [Recovered/Resolved]
  - Off label use [Unknown]
  - Underdose [Unknown]

NARRATIVE: CASE EVENT DATE: 20151117
